FAERS Safety Report 20458484 (Version 2)
Quarter: 2022Q3

REPORT INFORMATION
  Report Type: Spontaneous
  Country: US (occurrence: US)
  Receive Date: 20220211
  Receipt Date: 20220708
  Transmission Date: 20221027
  Serious: No
  Sender: FDA-Public Use
  Company Number: US-SA-SAC20220204000627

PATIENT
  Age: 10 Year
  Sex: Female

DRUGS (4)
  1. CEREZYME [Suspect]
     Active Substance: IMIGLUCERASE
     Indication: Gaucher^s disease
     Dosage: 3200 IU, QOW
     Route: 042
     Dates: start: 20190515
  2. CEREZYME [Suspect]
     Active Substance: IMIGLUCERASE
     Dosage: 1200 U, QOW
     Dates: end: 202205
  3. VITAMIN D3 [Concomitant]
     Active Substance: CHOLECALCIFEROL
     Dosage: UNK
  4. IRON [Concomitant]
     Active Substance: IRON
     Dosage: UNK

REACTIONS (3)
  - COVID-19 [Unknown]
  - General physical health deterioration [Unknown]
  - Illness [Unknown]

NARRATIVE: CASE EVENT DATE: 20220101
